FAERS Safety Report 4874861-6 (Version None)
Quarter: 2006Q1

REPORT INFORMATION
  Report Type: 
  Country: None (occurrence: None)
  Receive Date: 20060104
  Receipt Date: 20051222
  Transmission Date: 20060701
  Serious: Yes (Life-Threatening)
  Sender: FDA-Public Use
  Company Number: 2005171149

PATIENT
  Age: 72 Year
  Sex: Male

DRUGS (5)
  1. AMLODIPINE [Suspect]
     Indication: HYPERTENSION
     Dosage: 5 MG (5 MG, 1 IN 1 D), ORAL
     Route: 048
     Dates: end: 20050106
  2. CARVEDILOL [Suspect]
     Indication: HYPERTENSION
     Dosage: 12.5 MG (6.25 MG, 2 IN 1 D), ORAL
     Route: 048
     Dates: end: 20050106
  3. ATORVASTATIN CALCIUM [Concomitant]
  4. ACETYLSALICYLIC ACID SRT [Concomitant]
  5. MINITRAN (GLYCERYL TRINITRATE) [Concomitant]

REACTIONS (4)
  - BRADYCARDIA [None]
  - DIZZINESS [None]
  - DRUG INTERACTION [None]
  - HYPERHIDROSIS [None]
